FAERS Safety Report 4587334-5 (Version None)
Quarter: 2005Q1

REPORT INFORMATION
  Report Type: 
  Country: None (occurrence: None)
  Receive Date: 20050215
  Receipt Date: 20050202
  Transmission Date: 20050727
  Serious: Yes (Hospitalization)
  Sender: FDA-Public Use
  Company Number: 2004118898

PATIENT
  Age: 82 Year
  Sex: Female
  Weight: 70 kg

DRUGS (10)
  1. AZITHROMYCIN [Suspect]
     Indication: COUGH
     Dosage: 500 MG (500 MG, 1 IN 1 D), ORAL
     Route: 048
     Dates: start: 20041213, end: 20041215
  2. AMINOPHYLLIN [Suspect]
     Indication: STRIDOR
     Dosage: 250 MG, INTRAVENOUS
     Route: 042
     Dates: start: 20041215
  3. HUSCODE (CHLORPHENAMINE MALEATE, DIHYDROCODEINE PHOSPHATE, METHYLEPHED [Concomitant]
  4. TRETOQUINOL HYDROCHLORIDE (TRETROQUINOL HYDROCHLORIDE) [Concomitant]
  5. BROMHEXINE HYDROCHLORIDE (BROMHEXINE HYDROCHLORIDE) [Concomitant]
  6. TULOBUTEROL HYDROCHLORIDE (TULOBUTEROL HYDROCHLORIDE) [Concomitant]
  7. SALBUTAMOL SULFATE (SALBUTAMOL SULFATE) [Concomitant]
  8. ALFACALCIDOL (ALFACALCIDOL) [Concomitant]
  9. MAGNESIUM OXIDE (MAGNESIUM OXIDE) [Concomitant]
  10. DISTIGMINE BROMIDE (DISTRIGMINE BROMIDE) [Concomitant]

REACTIONS (5)
  - BRONCHITIS [None]
  - CONDITION AGGRAVATED [None]
  - DELIRIUM [None]
  - INSOMNIA [None]
  - STRIDOR [None]
